FAERS Safety Report 25508447 (Version 1)
Quarter: 2025Q3

REPORT INFORMATION
  Report Type: Spontaneous
  Country: GB (occurrence: GB)
  Receive Date: 20250703
  Receipt Date: 20250703
  Transmission Date: 20251020
  Serious: Yes (Hospitalization, Other)
  Sender: TEVA
  Company Number: GB-MHRA-35969597

PATIENT
  Age: 55 Year

DRUGS (1)
  1. ACITRETIN [Suspect]
     Active Substance: ACITRETIN
     Indication: Chronic cutaneous lupus erythematosus
     Route: 065

REACTIONS (2)
  - Budd-Chiari syndrome [Unknown]
  - Intracranial pressure increased [Unknown]
